FAERS Safety Report 26123696 (Version 1)
Quarter: 2025Q4

REPORT INFORMATION
  Report Type: Spontaneous
  Country: TR (occurrence: TR)
  Receive Date: 20251205
  Receipt Date: 20251205
  Transmission Date: 20260117
  Serious: Yes (Other)
  Sender: ACCORD
  Company Number: TR-MLMSERVICE-20251117-PI715475-00165-3

PATIENT
  Age: 57 Year
  Sex: Male

DRUGS (1)
  1. GEMCITABINE [Suspect]
     Active Substance: GEMCITABINE
     Indication: Pancreatic carcinoma
     Dosage: GEMCITABINE 1000 MG/M2 (1700 MG)

REACTIONS (1)
  - Hepatitis B reactivation [Recovering/Resolving]
